FAERS Safety Report 21832269 (Version 4)
Quarter: 2023Q4

REPORT INFORMATION
  Report Type: Report from Study
  Country: CN (occurrence: CN)
  Receive Date: 20230106
  Receipt Date: 20231018
  Transmission Date: 20240110
  Serious: Yes (Hospitalization)
  Sender: FDA-Public Use
  Company Number: CN-PFIZER INC-PV202300000698

PATIENT
  Age: 42 Year
  Sex: Female
  Weight: 69 kg

DRUGS (5)
  1. EPIRUBICIN HYDROCHLORIDE [Suspect]
     Active Substance: EPIRUBICIN HYDROCHLORIDE
     Indication: Triple negative breast cancer
     Dosage: 90 MG/M2, EVERY 2 WEEKS
     Route: 042
     Dates: start: 20221122, end: 20230128
  2. INVESTIGATIONAL PRODUCT [Suspect]
     Active Substance: INVESTIGATIONAL PRODUCT
     Indication: Triple negative breast cancer
     Dosage: EVERY 2 WEEKS
     Route: 042
     Dates: start: 20220722
  3. CYCLOPHOSPHAMIDE [Suspect]
     Active Substance: CYCLOPHOSPHAMIDE
     Indication: Triple negative breast cancer
     Dosage: 500 MG/M2, EVERY 2 WEEKS
     Route: 042
     Dates: start: 20221122, end: 20230128
  4. PACLITAXEL [Concomitant]
     Active Substance: PACLITAXEL
     Indication: Triple negative breast cancer
     Dosage: 100 MG/M2, THREE WEEK DOSING FOLLOWED BY ONE WEEK INTERVAL, ALBUMIN BOUND
     Route: 042
     Dates: start: 20220722, end: 20221107
  5. CARBOPLATIN [Concomitant]
     Active Substance: CARBOPLATIN
     Indication: Triple negative breast cancer
     Dosage: AUC1.5, THREE WEEK DOSING FOLLOWED BY ONE WEEK INTERVAL
     Route: 042
     Dates: start: 20220722, end: 20221107

REACTIONS (4)
  - White blood cell count decreased [Recovered/Resolved]
  - Bacteraemia [Recovered/Resolved]
  - Neutrophil count decreased [Recovered/Resolved]
  - Platelet count decreased [Recovered/Resolved]

NARRATIVE: CASE EVENT DATE: 20221223
